FAERS Safety Report 14803619 (Version 2)
Quarter: 2018Q4

REPORT INFORMATION
  Report Type: Report from Study
  Country: CN (occurrence: CN)
  Receive Date: 20180425
  Receipt Date: 20181010
  Transmission Date: 20190204
  Serious: Yes (Other)
  Sender: FDA-Public Use
  Company Number: CN-ROCHE-2106748

PATIENT
  Age: 72 Year
  Sex: Male

DRUGS (2)
  1. LOW MOLECULAR WEIGHT HEPARIN [Concomitant]
     Active Substance: UNSPECIFIED INGREDIENT
  2. ALTEPLASE. [Suspect]
     Active Substance: ALTEPLASE
     Indication: PULMONARY EMBOLISM
     Route: 042

REACTIONS (3)
  - Shock [Unknown]
  - Haemorrhage intracranial [Unknown]
  - Multiple organ dysfunction syndrome [Unknown]
